FAERS Safety Report 14137787 (Version 2)
Quarter: 2017Q4

REPORT INFORMATION
  Report Type: Spontaneous
  Country: US (occurrence: US)
  Receive Date: 20171027
  Receipt Date: 20171127
  Transmission Date: 20180321
  Serious: No
  Sender: FDA-Public Use
  Company Number: US-TAKEDA-2017TUS022000

PATIENT
  Sex: Female
  Weight: 94.79 kg

DRUGS (1)
  1. TRINTELLIX [Suspect]
     Active Substance: VORTIOXETINE HYDROBROMIDE
     Indication: ADJUSTMENT DISORDER WITH MIXED ANXIETY AND DEPRESSED MOOD
     Dosage: 5 MG, QD
     Route: 048
     Dates: start: 20171012, end: 20171016

REACTIONS (3)
  - Somnolence [Unknown]
  - Off label use [Unknown]
  - Fatigue [Unknown]
